FAERS Safety Report 8563789-6 (Version None)
Quarter: 2012Q3

REPORT INFORMATION
  Report Type: 
  Country: None (occurrence: None)
  Receive Date: 20120803
  Receipt Date: 20120723
  Transmission Date: 20120928
  Serious: No
  Sender: FDA-Public Use
  Company Number: US-009507513-1207USA009013

PATIENT

DRUGS (5)
  1. ISENTRESS [Suspect]
     Indication: HIV INFECTION
     Dosage: 400 MG, BID
     Route: 048
     Dates: start: 20120719
  2. PROZAC [Concomitant]
  3. DEPAKOTE [Concomitant]
  4. EPZICOM [Concomitant]
  5. AMITRIPTYLINE HCL [Concomitant]

REACTIONS (1)
  - ABNORMAL DREAMS [None]
